FAERS Safety Report 13081063 (Version 1)
Quarter: 2017Q1

REPORT INFORMATION
  Report Type: Spontaneous
  Country: US (occurrence: US)
  Receive Date: 20170103
  Receipt Date: 20170103
  Transmission Date: 20170428
  Serious: No
  Sender: FDA-Public Use
  Company Number: US-PFIZER INC-2016601305

PATIENT
  Age: 36 Year
  Sex: Male
  Weight: 92 kg

DRUGS (6)
  1. AKA PRINIVIL [Concomitant]
     Dosage: 20 MG, DAILY
     Route: 048
  2. AKA  ARIMIDEX [Concomitant]
     Dosage: UNK UNK, WEEKLY [TAKE 0.25 TABS BY MOUTH ONCE EVERY WEEK]
     Route: 048
  3. GENOTROPIN MQ [Suspect]
     Active Substance: SOMATROPIN
     Indication: BLOOD GROWTH HORMONE
     Dosage: 0.4 MG, DAILY
     Route: 058
     Dates: start: 201404
  4. AKA PREGNYL [Concomitant]
     Dosage: 500 IU, ALTERNATE DAY
     Route: 030
  5. TESTOSTERONE CYPIONATE. [Concomitant]
     Active Substance: TESTOSTERONE CYPIONATE
     Dosage: 100 MG, WEEKLY
     Route: 030
  6. CONCERTA [Concomitant]
     Active Substance: METHYLPHENIDATE HYDROCHLORIDE
     Dosage: 36 MG, DAILY
     Route: 048

REACTIONS (1)
  - Malaise [Unknown]
